FAERS Safety Report 13427896 (Version 3)
Quarter: 2017Q3

REPORT INFORMATION
  Report Type: Spontaneous
  Country: JP (occurrence: JP)
  Receive Date: 20170411
  Receipt Date: 20170712
  Transmission Date: 20171127
  Serious: Yes (Life-Threatening, Other)
  Sender: FDA-Public Use
  Company Number: JP-ALLERGAN-1713766US

PATIENT
  Age: 87 Year
  Sex: Female
  Weight: 44 kg

DRUGS (4)
  1. BETANIS [Concomitant]
     Active Substance: MIRABEGRON
     Indication: PRODUCT USED FOR UNKNOWN INDICATION
     Dosage: UNK
     Dates: start: 20141222
  2. MEMANTINE HCL - BP [Suspect]
     Active Substance: MEMANTINE
     Dosage: 20 MG, QD
     Route: 048
     Dates: end: 20141223
  3. MEMANTINE HCL - BP [Suspect]
     Active Substance: MEMANTINE
     Indication: DEMENTIA ALZHEIMER^S TYPE
     Dosage: 10 MG, QD
     Route: 048
     Dates: start: 201210, end: 20141223
  4. LANSOPRAZOLE. [Concomitant]
     Active Substance: LANSOPRAZOLE
     Indication: PRODUCT USED FOR UNKNOWN INDICATION
     Dosage: UNK
     Dates: start: 20141222

REACTIONS (7)
  - Posture abnormal [Recovering/Resolving]
  - Somnolence [Recovered/Resolved]
  - Hypophagia [Recovered/Resolved]
  - Cystitis [Recovered/Resolved]
  - Gait disturbance [Recovering/Resolving]
  - Altered state of consciousness [Recovering/Resolving]
  - Delirium [Recovered/Resolved]

NARRATIVE: CASE EVENT DATE: 201410
